FAERS Safety Report 8886442 (Version 1)
Quarter: 2012Q4

REPORT INFORMATION
  Report Type: 
  Country: US (occurrence: US)
  Receive Date: 20121105
  Receipt Date: 20121105
  Transmission Date: 20130627
  Serious: No
  Sender: FDA-Public Use
  Company Number: US-PFIZER INC-2012274737

PATIENT
  Age: 60 Year
  Sex: Male
  Weight: 99.77 kg

DRUGS (11)
  1. LYRICA [Suspect]
     Indication: NERVOUS SYSTEM DISORDER
     Dosage: 75 mg, 3x/day
     Dates: end: 201210
  2. LYRICA [Suspect]
     Indication: DEGENERATIVE ARTHRITIS SPINE
  3. LYRICA [Suspect]
     Indication: NUMBNESS IN LEG
  4. LYRICA [Suspect]
     Indication: COLD FEET
  5. LYRICA [Suspect]
     Indication: TINGLING FEET/HANDS
  6. LYRICA [Suspect]
     Indication: PAIN
  7. VICODIN [Suspect]
     Indication: DEGENERATIVE ARTHRITIS SPINE
     Dosage: UNK
  8. VICODIN [Suspect]
     Indication: SPINAL STENOSIS NOS
  9. VICODIN [Suspect]
     Indication: PAIN
  10. TRAZODONE [Concomitant]
     Indication: SLEEP PROBLEM
     Dosage: 75 mg, daily
  11. LORAZEPAM [Concomitant]
     Indication: SLEEP PROBLEM
     Dosage: 2mg or 4mg daily

REACTIONS (3)
  - Drug ineffective [Not Recovered/Not Resolved]
  - Off label use [Unknown]
  - Drug ineffective for unapproved indication [Not Recovered/Not Resolved]
